FAERS Safety Report 15386199 (Version 2)
Quarter: 2018Q4

REPORT INFORMATION
  Report Type: Report from Study
  Country: CA (occurrence: CA)
  Receive Date: 20180914
  Receipt Date: 20181015
  Transmission Date: 20190204
  Serious: Yes (Other)
  Sender: FDA-Public Use
  Company Number: CA-GLAXOSMITHKLINE-CA2018GSK163428

PATIENT
  Sex: Female

DRUGS (3)
  1. SALBUTAMOL SULPHATE [Suspect]
     Active Substance: ALBUTEROL SULFATE
     Indication: PRODUCT USED FOR UNKNOWN INDICATION
     Dosage: 8 PUFF(S), QD
  2. CANDESARTAN. [Concomitant]
     Active Substance: CANDESARTAN
     Indication: HYPERTENSION
     Dosage: UNK
  3. NUCALA [Suspect]
     Active Substance: MEPOLIZUMAB
     Indication: ASTHMA
     Dosage: 100 MG, Z,MONTHLY
     Route: 042

REACTIONS (4)
  - Chronic obstructive pulmonary disease [Unknown]
  - Heart rate increased [Unknown]
  - Pseudomonas infection [Unknown]
  - Blood pressure increased [Unknown]
